FAERS Safety Report 5071321-7 (Version None)
Quarter: 2006Q3

REPORT INFORMATION
  Report Type: 
  Country: None (occurrence: None)
  Receive Date: 20060804
  Receipt Date: 20051215
  Transmission Date: 20061208
  Serious: No
  Sender: FDA-Public Use
  Company Number: US-AMGEN-US161638

PATIENT
  Sex: Female
  Weight: 55 kg

DRUGS (13)
  1. ARANESP [Suspect]
     Indication: RENAL FAILURE CHRONIC
     Route: 058
     Dates: start: 20040326
  2. CELLCEPT [Concomitant]
     Dates: start: 20050713
  3. RABEPRAZOLE SODIUM [Concomitant]
     Dates: start: 20050713
  4. ASPIRIN [Concomitant]
     Dates: start: 20020101
  5. BACTRIM [Concomitant]
     Route: 054
     Dates: start: 20040708
  6. CALCIUM CARBONATE [Concomitant]
     Dates: start: 20050713
  7. MULTIVIT [Concomitant]
     Dates: start: 20020101
  8. NIFEREX [Concomitant]
     Dates: start: 20050713
  9. TACROLIMUS [Concomitant]
     Dates: start: 20050713
  10. CALCITRIOL [Concomitant]
     Dates: start: 20050713
  11. SODIUM BICARBONATE [Concomitant]
     Dates: start: 20040708
  12. METOPROLOL TARTRATE [Concomitant]
     Dates: start: 20050713
  13. LISINOPRIL [Concomitant]
     Dates: start: 20050516

REACTIONS (3)
  - IRON DEFICIENCY [None]
  - THERAPEUTIC RESPONSE DECREASED [None]
  - TREATMENT NONCOMPLIANCE [None]
